FAERS Safety Report 18582599 (Version 1)
Quarter: 2020Q4

REPORT INFORMATION
  Report Type: Spontaneous
  Country: IT (occurrence: IT)
  Receive Date: 20201205
  Receipt Date: 20201205
  Transmission Date: 20210114
  Serious: Yes (Other)
  Sender: FDA-Public Use
  Company Number: IT-ACCORD-210099

PATIENT
  Age: 45 Year
  Sex: Male

DRUGS (1)
  1. OXALIPLATIN ACCORD [Suspect]
     Active Substance: OXALIPLATIN
     Indication: RECTAL CANCER
     Dosage: STRENGTH-5 MG / ML
     Route: 042
     Dates: start: 20201124, end: 20201124

REACTIONS (3)
  - Flushing [Recovered/Resolved]
  - Chest discomfort [Recovered/Resolved]
  - Depressed level of consciousness [Recovered/Resolved]

NARRATIVE: CASE EVENT DATE: 20201124
